FAERS Safety Report 15232194 (Version 2)
Quarter: 2018Q3

REPORT INFORMATION
  Report Type: Spontaneous
  Country: US (occurrence: US)
  Receive Date: 20180802
  Receipt Date: 20180918
  Transmission Date: 20181010
  Serious: No
  Sender: FDA-Public Use
  Company Number: US-PFIZER INC-2018305440

PATIENT
  Age: 65 Year
  Sex: Male
  Weight: 113.4 kg

DRUGS (2)
  1. ADVIL [Suspect]
     Active Substance: IBUPROFEN
     Indication: PAIN
     Dosage: 600 MG, 3X/DAY(3 LIQUIGELS AT ONE TIME, TOOK AT LEAST 6 IN A DAY, IF NOT MORE )
     Route: 048
     Dates: start: 20180720
  2. ADVIL [Suspect]
     Active Substance: IBUPROFEN
     Dosage: UNK, UNK (TOOK AT LEAST 6 IN A DAY, IF NOT MORE)
     Route: 048

REACTIONS (2)
  - Intentional product misuse [Unknown]
  - Drug ineffective [Unknown]

NARRATIVE: CASE EVENT DATE: 20180720
